FAERS Safety Report 18706485 (Version 1)
Quarter: 2021Q1

REPORT INFORMATION
  Report Type: Spontaneous
  Country: US (occurrence: US)
  Receive Date: 20210106
  Receipt Date: 20210106
  Transmission Date: 20210419
  Serious: Yes (Other)
  Sender: FDA-Public Use
  Company Number: US-SLATE RUN PHARMACEUTICALS-20US000366

PATIENT

DRUGS (5)
  1. CEFEPIME [Concomitant]
     Active Substance: CEFEPIME HYDROCHLORIDE
     Indication: MEDIASTINAL ABSCESS
     Dosage: 2 GRAM, Q 12 HR
     Route: 042
  2. CEFEPIME [Concomitant]
     Active Substance: CEFEPIME HYDROCHLORIDE
     Indication: OSTEOMYELITIS
  3. VANCOMYCIN HYDROCHLORIDE USP [Suspect]
     Active Substance: VANCOMYCIN HYDROCHLORIDE
     Dosage: 1250 MILLIGRAM, Q 12 HR
     Route: 042
  4. VANCOMYCIN HYDROCHLORIDE USP [Suspect]
     Active Substance: VANCOMYCIN HYDROCHLORIDE
     Indication: MEDIASTINAL ABSCESS
     Dosage: 1250 MILLIGRAM, Q 12 HR
     Route: 042
  5. VANCOMYCIN HYDROCHLORIDE USP [Suspect]
     Active Substance: VANCOMYCIN HYDROCHLORIDE
     Indication: OSTEOMYELITIS
     Dosage: 4000 MILLIGRAM, SINGLE
     Route: 065

REACTIONS (2)
  - Nephropathy toxic [Recovering/Resolving]
  - Off label use [Unknown]
